FAERS Safety Report 5064250-6 (Version None)
Quarter: 2006Q3

REPORT INFORMATION
  Report Type: 
  Country: None (occurrence: None)
  Receive Date: 20060726
  Receipt Date: 20060726
  Transmission Date: 20061208
  Serious: Yes (Life-Threatening, Disabling, Other)
  Sender: FDA-Public Use
  Company Number: None

PATIENT
  Age: 53 Year
  Sex: Female
  Weight: 48.0813 kg

DRUGS (2)
  1. FLORINEF [Suspect]
     Indication: HYPOTENSION
     Dosage: 1 TAB EACH DAY PO
     Route: 048
     Dates: start: 20060424, end: 20060525
  2. FLORINEF [Suspect]
     Indication: HYPOTENSION
     Dosage: 1 TAB EACH DAY PO
     Route: 048
     Dates: start: 20060701, end: 20060704

REACTIONS (3)
  - CONTRAINDICATION TO MEDICAL TREATMENT [None]
  - DRUG PRESCRIBING ERROR [None]
  - UNEVALUABLE EVENT [None]
